FAERS Safety Report 14226057 (Version 1)
Quarter: 2017Q4

REPORT INFORMATION
  Report Type: Spontaneous
  Country: GB (occurrence: GB)
  Receive Date: 20171127
  Receipt Date: 20171127
  Transmission Date: 20180321
  Serious: Yes (Death, Other)
  Sender: FDA-Public Use
  Company Number: GB-TEVA-2017-GB-826839

PATIENT
  Age: 15 Day
  Sex: Male

DRUGS (1)
  1. ACITRETIN UNK [Suspect]
     Active Substance: ACITRETIN
     Indication: ICHTHYOSIS
     Route: 065

REACTIONS (6)
  - Metabolic acidosis [Unknown]
  - Drug ineffective for unapproved indication [Unknown]
  - Hypotension [Unknown]
  - Off label use [Unknown]
  - Sepsis [Fatal]
  - Tachypnoea [Unknown]
